FAERS Safety Report 19954375 (Version 1)
Quarter: 2021Q4

REPORT INFORMATION
  Report Type: Spontaneous
  Country: CN (occurrence: CN)
  Receive Date: 20211013
  Receipt Date: 20211013
  Transmission Date: 20220303
  Serious: Yes (Other)
  Sender: FDA-Public Use
  Company Number: CN-ABBVIE-21K-035-4117906-00

PATIENT
  Age: 69 Year
  Sex: Female
  Weight: 60 kg

DRUGS (5)
  1. VALPROATE SODIUM [Suspect]
     Active Substance: VALPROATE SODIUM
     Indication: Seizure prophylaxis
     Route: 048
     Dates: start: 20181221, end: 20181226
  2. LIGUSTRAZINE HYDROCHLORIDE [Suspect]
     Active Substance: LIGUSTRAZINE HYDROCHLORIDE
     Indication: Cerebral infarction
     Dosage: IV DRIP
     Route: 042
     Dates: start: 20181120, end: 20181224
  3. LIGUSTRAZINE HYDROCHLORIDE [Suspect]
     Active Substance: LIGUSTRAZINE HYDROCHLORIDE
     Dosage: IV DRIP
     Route: 042
     Dates: start: 20181120, end: 20181224
  4. VINPOCETINE [Suspect]
     Active Substance: VINPOCETINE
     Indication: Cardiovascular disorder
     Dosage: IV DRIP
     Route: 065
     Dates: start: 20181220, end: 20181224
  5. SODIUM CHLORIDE [Concomitant]
     Active Substance: SODIUM CHLORIDE
     Indication: Product used for unknown indication
     Route: 065
     Dates: start: 20181220, end: 20181224

REACTIONS (3)
  - Rash erythematous [Recovered/Resolved]
  - Oedema [Recovering/Resolving]
  - Pruritus [Recovered/Resolved]

NARRATIVE: CASE EVENT DATE: 20181224
